FAERS Safety Report 17399936 (Version 1)
Quarter: 2020Q1

REPORT INFORMATION
  Report Type: Spontaneous
  Country: CA (occurrence: CA)
  Receive Date: 20200211
  Receipt Date: 20200211
  Transmission Date: 20200409
  Serious: Yes (Hospitalization, Other)
  Sender: FDA-Public Use
  Company Number: CA-APOTEX-2020AP007519

PATIENT
  Age: 50 Year
  Sex: Female

DRUGS (2)
  1. NALTREXONE [Suspect]
     Active Substance: NALTREXONE
     Indication: PRODUCT USED FOR UNKNOWN INDICATION
     Dosage: 50 MG, SINGLE
     Route: 048
     Dates: start: 201906
  2. METHADONE [Suspect]
     Active Substance: METHADONE HYDROCHLORIDE
     Indication: PRODUCT USED FOR UNKNOWN INDICATION
     Dosage: 100 MG, Q.AM
     Route: 048

REACTIONS (7)
  - Contraindicated product administered [Unknown]
  - Pupillary reflex impaired [Recovered/Resolved]
  - Diarrhoea [Recovered/Resolved]
  - Delirium [Recovered/Resolved]
  - Drug withdrawal syndrome [Recovered/Resolved]
  - Agitation [Recovered/Resolved]
  - Drug diversion [Unknown]

NARRATIVE: CASE EVENT DATE: 201906
